FAERS Safety Report 8514641-3 (Version None)
Quarter: 2012Q3

REPORT INFORMATION
  Report Type: 
  Country: None (occurrence: None)
  Receive Date: 20120712
  Receipt Date: 20120712
  Transmission Date: 20120928
  Serious: Yes (Death)
  Sender: FDA-Public Use
  Company Number: None

PATIENT
  Sex: Male
  Weight: 90.7194 kg

DRUGS (1)
  1. FOSAMAX [Suspect]
     Indication: OSTEOPOROSIS
     Dosage: 70 MG TABLETS
     Dates: start: 20040401, end: 20080501

REACTIONS (2)
  - BARRETT'S OESOPHAGUS [None]
  - OESOPHAGEAL ADENOCARCINOMA STAGE IV [None]
